FAERS Safety Report 15060815 (Version 4)
Quarter: 2019Q4

REPORT INFORMATION
  Report Type: Report from Study
  Country: JP (occurrence: JP)
  Receive Date: 20180625
  Receipt Date: 20191111
  Transmission Date: 20200122
  Serious: Yes (Other)
  Sender: FDA-Public Use
  Company Number: JP-OTSUKA-2018_017383

PATIENT
  Sex: Male

DRUGS (4)
  1. TOLVAPTAN [Suspect]
     Active Substance: TOLVAPTAN
     Dosage: 30MG/DAY, DIVIDED 2 DOSES (EACH DOSE UNKNOWN)
     Route: 048
     Dates: start: 20160615
  2. TOLVAPTAN [Suspect]
     Active Substance: TOLVAPTAN
     Indication: CONGENITAL CYSTIC KIDNEY DISEASE
     Dosage: 60MG/DAY, DIVIDED 2 DOSES (EACH DOSE UNKNOWN)
     Route: 048
     Dates: start: 20151222, end: 20160120
  3. NORVASC [Concomitant]
     Active Substance: AMLODIPINE BESYLATE
     Indication: PRODUCT USED FOR UNKNOWN INDICATION
     Dosage: 10 MG, QD
     Route: 048
     Dates: start: 20150415
  4. NU-LOTAN [Concomitant]
     Active Substance: LOSARTAN POTASSIUM
     Indication: PRODUCT USED FOR UNKNOWN INDICATION
     Dosage: 50 MG, QD
     Route: 048
     Dates: start: 20150610

REACTIONS (2)
  - Hepatic steatosis [Unknown]
  - Weight increased [Unknown]
